FAERS Safety Report 14184211 (Version 1)
Quarter: 2017Q4

REPORT INFORMATION
  Report Type: Report from Study
  Country: US (occurrence: US)
  Receive Date: 20171113
  Receipt Date: 20171113
  Transmission Date: 20180321
  Serious: Yes (Hospitalization, Other)
  Sender: FDA-Public Use
  Company Number: US-INDIVIOR LIMITED-INDV-106010-2017

PATIENT
  Age: 32 Year
  Sex: Male

DRUGS (2)
  1. SUBOXONE [Suspect]
     Active Substance: BUPRENORPHINE HYDROCHLORIDE\NALOXONE HYDROCHLORIDE
     Indication: PRODUCT USED FOR UNKNOWN INDICATION
     Dosage: UNK
     Route: 065
  2. SUBUTEX [Suspect]
     Active Substance: BUPRENORPHINE HYDROCHLORIDE
     Indication: PRODUCT USED FOR UNKNOWN INDICATION
     Dosage: UNK
     Route: 065

REACTIONS (9)
  - Hallucination [Recovered/Resolved]
  - Dehydration [Recovered/Resolved]
  - Anxiety [Recovered/Resolved]
  - Hospitalisation [Recovered/Resolved]
  - Feeling abnormal [Recovered/Resolved]
  - Blood glucose decreased [Recovered/Resolved]
  - Palpitations [Recovered/Resolved]
  - Euphoric mood [Recovered/Resolved]
  - Substance abuse [Recovered/Resolved]
